FAERS Safety Report 8571226-0 (Version None)
Quarter: 2012Q3

REPORT INFORMATION
  Report Type: 
  Country: None (occurrence: None)
  Receive Date: 20120730
  Receipt Date: 20120730
  Transmission Date: 20120928
  Serious: No
  Sender: FDA-Public Use
  Company Number: None

PATIENT
  Age: 63 Year
  Sex: Male
  Weight: 140.9 kg

DRUGS (1)
  1. GLIPIZIDE [Suspect]
     Indication: DIABETES MELLITUS
     Dosage: 2.5 MG  EVERY DAY PO
     Route: 048
     Dates: start: 20120616, end: 20120619

REACTIONS (7)
  - ORAL DISCOMFORT [None]
  - SEDATION [None]
  - LIP SWELLING [None]
  - GLOSSODYNIA [None]
  - ANGIOEDEMA [None]
  - DIZZINESS [None]
  - SWOLLEN TONGUE [None]
